FAERS Safety Report 7622944-X (Version None)
Quarter: 2011Q3

REPORT INFORMATION
  Report Type: 
  Country: None (occurrence: None)
  Receive Date: 20110720
  Receipt Date: 20110712
  Transmission Date: 20111222
  Serious: Yes (Hospitalization)
  Sender: FDA-Public Use
  Company Number: US-SANOFI-AVENTIS-2011SA036167

PATIENT
  Age: 69 Year
  Sex: Female
  Weight: 99.79 kg

DRUGS (10)
  1. LANTUS [Suspect]
     Dosage: DOSE:30 UNIT(S)
     Route: 058
     Dates: start: 20110613, end: 20110627
  2. SOLOSTAR [Suspect]
     Dates: start: 20110219, end: 20110608
  3. OMEPRAZOLE [Concomitant]
     Indication: GASTRIC DISORDER
  4. HUMALOG [Concomitant]
  5. ESTROPIPATE [Concomitant]
  6. LANTUS [Suspect]
     Dosage: DOSE:30 UNIT(S)
     Route: 058
     Dates: start: 20110219, end: 20110608
  7. SOLOSTAR [Suspect]
     Dates: start: 20110613, end: 20110627
  8. QUINAPRIL HCL [Concomitant]
     Indication: BLOOD PRESSURE
     Dosage: 20/25
  9. ALPRAZOLAM [Concomitant]
     Indication: ANXIETY
     Dosage: 1 AND A HALF TABLETS AS NEEDED
  10. SIMVASTATIN [Concomitant]

REACTIONS (4)
  - NEURALGIA [None]
  - BLOOD GLUCOSE INCREASED [None]
  - HERNIA REPAIR [None]
  - PRURITUS [None]
